FAERS Safety Report 18449947 (Version 2)
Quarter: 2021Q4

REPORT INFORMATION
  Report Type: Other
  Country: MX (occurrence: None)
  Receive Date: 20201030
  Receipt Date: 20211101
  Transmission Date: 20220303
  Serious: Yes (Hospitalization)
  Sender: FDA-Public Use
  Company Number: MX-ROCHE-2703674

PATIENT
  Age: 59 Year
  Sex: Female

DRUGS (2)
  1. MABTHERA [Suspect]
     Active Substance: RITUXIMAB
     Indication: Rheumatoid arthritis
     Route: 042
     Dates: start: 2017
  2. MABTHERA [Suspect]
     Active Substance: RITUXIMAB
     Dosage: ANNUAL APPLICATION OF MABTHERA IN NOV/2020
     Route: 042
     Dates: start: 20180903

REACTIONS (2)
  - Knee operation [Recovered/Resolved]
  - Off label use [Unknown]

NARRATIVE: CASE EVENT DATE: 20201001
